FAERS Safety Report 24849499 (Version 1)
Quarter: 2025Q1

REPORT INFORMATION
  Report Type: Spontaneous
  Country: NL (occurrence: NL)
  Receive Date: 20250116
  Receipt Date: 20250116
  Transmission Date: 20250409
  Serious: Yes (Other)
  Sender: SAMSUNG BIOEPIS
  Company Number: NL-SAMSUNG BIOEPIS-SB-2025-01207

PATIENT
  Sex: Male

DRUGS (1)
  1. PYZCHIVA [Suspect]
     Active Substance: USTEKINUMAB-TTWE
     Indication: Product used for unknown indication

REACTIONS (6)
  - Flatulence [Unknown]
  - Loss of personal independence in daily activities [Unknown]
  - Abdominal distension [Unknown]
  - Abdominal pain upper [Unknown]
  - Abnormal faeces [Unknown]
  - Pruritus [Unknown]
